FAERS Safety Report 23685648 (Version 1)
Quarter: 2024Q1

REPORT INFORMATION
  Report Type: Spontaneous
  Country: JP (occurrence: JP)
  Receive Date: 20240329
  Receipt Date: 20240329
  Transmission Date: 20240410
  Serious: Yes (Death)
  Sender: FDA-Public Use
  Company Number: JP-MALLINCKRODT-MNK202402125

PATIENT
  Sex: Male
  Weight: 1 kg

DRUGS (3)
  1. NITRIC OXIDE [Suspect]
     Active Substance: NITRIC OXIDE
     Indication: Chronic respiratory disease
     Dosage: UNKNOWN, RESPIRATORY
     Route: 055
     Dates: start: 2016
  2. SILDENAFIL [Concomitant]
     Active Substance: SILDENAFIL
     Dosage: UNKNOWN
  3. BOSENTAN [Concomitant]
     Active Substance: BOSENTAN
     Dosage: UNKNOWN

REACTIONS (3)
  - Death [Fatal]
  - Product use in unapproved indication [Unknown]
  - Product use issue [Unknown]
